FAERS Safety Report 9100513 (Version 3)
Quarter: 2013Q2

REPORT INFORMATION
  Report Type: Report from Study
  Country: US (occurrence: US)
  Receive Date: 20130214
  Receipt Date: 20130522
  Transmission Date: 20140414
  Serious: Yes (Other)
  Sender: FDA-Public Use
  Company Number: US-BAYER-2013-019057

PATIENT
  Age: 78 Year
  Sex: Female

DRUGS (3)
  1. STIVARGA [Suspect]
     Indication: COLON CANCER
     Dosage: 40 MG, 4 TABLETS
     Route: 048
     Dates: start: 20130102, end: 20130130
  2. STIVARGA [Suspect]
     Indication: COLON CANCER
     Dosage: 120 MG, QD
     Route: 048
     Dates: start: 20130102, end: 20130130
  3. STIVARGA [Suspect]
     Indication: COLON CANCER
     Dosage: 40 MG, 3 TABLETS, DAILY
     Route: 048
     Dates: start: 20130313, end: 20130521

REACTIONS (5)
  - Atrial fibrillation [Recovered/Resolved]
  - Blister [Recovered/Resolved]
  - Stomatitis [Recovered/Resolved]
  - Fatigue [Not Recovered/Not Resolved]
  - Alopecia [Not Recovered/Not Resolved]
